FAERS Safety Report 19656288 (Version 2)
Quarter: 2021Q3

REPORT INFORMATION
  Report Type: Spontaneous
  Country: US (occurrence: US)
  Receive Date: 20210804
  Receipt Date: 20210903
  Transmission Date: 20211014
  Serious: Yes (Hospitalization, Other)
  Sender: FDA-Public Use
  Company Number: US-PFIZER INC-2019105919

PATIENT
  Age: 70 Year
  Sex: Female
  Weight: 83.64 kg

DRUGS (4)
  1. LYRICA [Suspect]
     Active Substance: PREGABALIN
     Indication: PAIN
     Dosage: 50 MG, THREE TIMES A DAY AS NEEDED
     Route: 048
  2. TRAMADOL. [Concomitant]
     Active Substance: TRAMADOL
     Indication: PAIN
     Dosage: 100 MG, EVERY 6 HOURS AS NEEDED
  3. LYRICA [Suspect]
     Active Substance: PREGABALIN
     Indication: NEUROPATHY PERIPHERAL
     Dosage: 75 MG, 3X/DAY
     Route: 048
  4. HYDROCODONE [Concomitant]
     Active Substance: HYDROCODONE
     Indication: PAIN
     Dosage: ACETAMINOPHEN 10/325 MG ONE TABLET AS NEEDED

REACTIONS (7)
  - Injury [Unknown]
  - Therapeutic product effect incomplete [Unknown]
  - Nerve injury [Unknown]
  - Intervertebral disc injury [Unknown]
  - Product use issue [Unknown]
  - Intentional product misuse [Unknown]
  - Anxiety [Unknown]
